FAERS Safety Report 10041279 (Version 1)
Quarter: 2014Q1

REPORT INFORMATION
  Report Type: Spontaneous
  Country: US (occurrence: None)
  Receive Date: 20140326
  Receipt Date: 20140326
  Transmission Date: 20141002
  Serious: Yes (Hospitalization)
  Sender: FDA-Public Use
  Company Number: None

PATIENT
  Age: 64 Year
  Sex: Male
  Weight: 85.5 kg

DRUGS (1)
  1. AMOXICILLIN/CLAVULANATE [Suspect]
     Indication: UPPER RESPIRATORY TRACT INFECTION
     Dates: start: 20130505

REACTIONS (3)
  - Hepatic enzyme increased [None]
  - Jaundice [None]
  - Cholestasis [None]
